FAERS Safety Report 7711896-X (Version None)
Quarter: 2011Q3

REPORT INFORMATION
  Report Type: 
  Country: None (occurrence: None)
  Receive Date: 20110826
  Receipt Date: 20110817
  Transmission Date: 20111222
  Serious: Yes (Hospitalization)
  Sender: FDA-Public Use
  Company Number: US-AMGEN-USASP2011041928

PATIENT
  Age: 56 Year
  Sex: Female

DRUGS (1)
  1. ENBREL [Suspect]
     Indication: PSORIASIS
     Dosage: 50 MG, QWK
     Dates: start: 20030801

REACTIONS (7)
  - PAIN OF SKIN [None]
  - PAIN [None]
  - HYPERHIDROSIS [None]
  - COLD SWEAT [None]
  - HEADACHE [None]
  - THIRST [None]
  - ARTHRALGIA [None]
